FAERS Safety Report 22188442 (Version 1)
Quarter: 2023Q2

REPORT INFORMATION
  Report Type: Other
  Country: US (occurrence: US)
  Receive Date: 20230408
  Receipt Date: 20230408
  Transmission Date: 20230722
  Serious: Yes (Death)
  Sender: FDA-Public Use
  Company Number: US-ALVOGEN-2023089515

PATIENT
  Age: 43 Year
  Sex: Male

DRUGS (6)
  1. FLUOXETINE [Suspect]
     Active Substance: FLUOXETINE HYDROCHLORIDE
     Indication: Drug withdrawal syndrome
  2. AMPHETAMINE [Suspect]
     Active Substance: AMPHETAMINE
     Indication: Drug withdrawal syndrome
  3. ALCOHOL [Suspect]
     Active Substance: ALCOHOL
     Indication: Drug withdrawal syndrome
  4. KETAMINE [Suspect]
     Active Substance: KETAMINE
     Indication: Drug withdrawal syndrome
  5. ALPRAZOLAM [Suspect]
     Active Substance: ALPRAZOLAM
     Indication: Drug withdrawal syndrome
  6. LISDEXAMFETAMINE [Suspect]
     Active Substance: LISDEXAMFETAMINE
     Indication: Drug withdrawal syndrome

REACTIONS (1)
  - Drug withdrawal syndrome [Fatal]
